FAERS Safety Report 8579080-8 (Version None)
Quarter: 2012Q2

REPORT INFORMATION
  Report Type: 
  Country: None (occurrence: None)
  Receive Date: 20120423
  Receipt Date: 20100628
  Transmission Date: 20120825
  Serious: Yes (Death, Hospitalization)
  Sender: FDA-Public Use
  Company Number: PHHY2010US31444

PATIENT
  Age: 58 Year
  Sex: Male

DRUGS (2)
  1. EXJADE [Suspect]
     Dosage: 1750 MG,QD, ORAL
     Route: 048
     Dates: start: 20100211
  2. CHEMOTHERAPEUTIC NOS (NO INGREDIENTS/SUBSTANCES) [Concomitant]

REACTIONS (2)
  - ACUTE LEUKAEMIA [None]
  - NEOPLASM MALIGNANT [None]
